FAERS Safety Report 18822539 (Version 1)
Quarter: 2021Q1

REPORT INFORMATION
  Report Type: Spontaneous
  Country: CN (occurrence: CN)
  Receive Date: 20210202
  Receipt Date: 20210202
  Transmission Date: 20210419
  Serious: Yes (Hospitalization)
  Sender: FDA-Public Use
  Company Number: CN-AZURITY PHARMACEUTICALS, INC.-2021AZY00013

PATIENT
  Age: 43 Year
  Sex: Female
  Weight: 54 kg

DRUGS (1)
  1. VANCOMYCIN HYDROCHLORIDE. [Suspect]
     Active Substance: VANCOMYCIN HYDROCHLORIDE
     Indication: PROPHYLAXIS
     Dosage: 1 G SPRAYED ON THE DURA MATER AND INTO THE MASCULARIS LAYER
     Route: 065

REACTIONS (2)
  - Circulatory collapse [Recovered/Resolved]
  - Anaphylactic reaction [Recovered/Resolved]
